FAERS Safety Report 5192026-8 (Version None)
Quarter: 2006Q4

REPORT INFORMATION
  Report Type: 
  Country: None (occurrence: None)
  Receive Date: 20061220
  Receipt Date: 20061220
  Transmission Date: 20070319
  Serious: Yes (Hospitalization)
  Sender: FDA-Public Use
  Company Number: None

PATIENT
  Age: 43 Year
  Sex: Female
  Weight: 140.6151 kg

DRUGS (13)
  1. OXYCONTIN [Suspect]
     Indication: CANCER PAIN
     Dosage: 30 MG Q12H PO  CHRONIC
     Route: 048
  2. DILAUDID [Suspect]
     Indication: CANCER PAIN
     Dosage: 2 MG (SEVERAL?)  Q 4-6 H PRN PO CHRONIC
     Route: 048
  3. LEXAPRO [Concomitant]
  4. EFFEXOR [Concomitant]
  5. SEROQUEL [Concomitant]
  6. MOTRIN [Concomitant]
  7. OXYCONTIN [Concomitant]
  8. DILAUDID [Concomitant]
  9. TYLENOL [Concomitant]
  10. K-DUR 10 [Concomitant]
  11. COLACE [Concomitant]
  12. ADVAIR DISKUS 100/50 [Concomitant]
  13. ALBUTEROL [Concomitant]

REACTIONS (2)
  - DEPRESSED LEVEL OF CONSCIOUSNESS [None]
  - LETHARGY [None]
